FAERS Safety Report 9145917 (Version 1)
Quarter: 2013Q1

REPORT INFORMATION
  Report Type: Spontaneous
  Country: US (occurrence: None)
  Receive Date: 20130215
  Receipt Date: 20130215
  Transmission Date: 20140127
  Serious: Yes (Death)
  Sender: FDA-Public Use
  Company Number: 2013020132

PATIENT
  Age: 45 Year
  Sex: Male

DRUGS (7)
  1. CAFFEINE (CAFFEINE) [Suspect]
  2. CODEINE (CODEINE) [Suspect]
  3. OXYCODONE (OXYCODONE) [Suspect]
  4. ACETAMINOPHEN/HYDROCODONE (ACETAMINOPHEN, HYDROCODONE) [Suspect]
  5. ETHANOL (ETHANOL) (UNKNOWN) (ETHANOL) [Suspect]
  6. BUTALBITAL (BUTALBITAL) [Suspect]
  7. TEMAZEPAM (TEMAZEPAM) [Suspect]

REACTIONS (3)
  - Drug abuse [None]
  - Cardiac arrest [None]
  - Respiratory arrest [None]
